FAERS Safety Report 4748899-3 (Version None)
Quarter: 2005Q3

REPORT INFORMATION
  Report Type: 
  Country: None (occurrence: None)
  Receive Date: 20050817
  Receipt Date: 20050805
  Transmission Date: 20060218
  Serious: Yes (Hospitalization)
  Sender: FDA-Public Use
  Company Number: 046-0981-M0000075

PATIENT
  Sex: Male

DRUGS (4)
  1. ATORVASTATIN CALCIUM [Suspect]
     Indication: CORONARY ARTERY DISEASE
     Dosage: 80 MG (1 IN 1 D), ORAL
     Route: 048
     Dates: start: 20000215, end: 20050208
  2. METOPROLOL TARTRATE [Concomitant]
  3. NIFEDIPIN ^VERLA^ (NIFEDIPINE) [Concomitant]
  4. ACETYLSALICYLIC ACID SRT [Concomitant]

REACTIONS (6)
  - COUGH [None]
  - DEPRESSION [None]
  - FATIGUE [None]
  - PYREXIA [None]
  - WEIGHT DECREASED [None]
  - WEIGHT INCREASED [None]
